FAERS Safety Report 10367527 (Version 2)
Quarter: 2014Q4

REPORT INFORMATION
  Report Type: Spontaneous
  Country: US (occurrence: US)
  Receive Date: 20140807
  Receipt Date: 20141230
  Transmission Date: 20150528
  Serious: Yes (Other)
  Sender: FDA-Public Use
  Company Number: US-AMGEN-USASP2014058395

PATIENT
  Sex: Female
  Weight: 63.95 kg

DRUGS (1)
  1. PROLIA [Suspect]
     Active Substance: DENOSUMAB
     Indication: OSTEOPOROSIS POSTMENOPAUSAL
     Route: 065

REACTIONS (11)
  - Angina pectoris [Unknown]
  - Immobile [Unknown]
  - Dementia [Unknown]
  - Mobility decreased [Unknown]
  - General physical health deterioration [Unknown]
  - Body height decreased [Unknown]
  - Vitamin D deficiency [Unknown]
  - Hypertension [Unknown]
  - Cardiac failure congestive [Unknown]
  - Hyperlipidaemia [Unknown]
  - Back pain [Unknown]
